FAERS Safety Report 9525022 (Version 4)
Quarter: 2013Q4

REPORT INFORMATION
  Report Type: Report from Study
  Country: US (occurrence: US)
  Receive Date: 20130916
  Receipt Date: 20131111
  Transmission Date: 20140711
  Serious: Yes (Other)
  Sender: FDA-Public Use
  Company Number: US-IPSEN BIOPHARMACEUTICALS, INC.-2013-3358

PATIENT
  Age: 34 Year
  Sex: Male
  Weight: 122.5 kg

DRUGS (4)
  1. SOMATULINE DEPOT INJECTION (120MG) [Suspect]
     Indication: ACROMEGALY
     Dosage: 120 MG
     Route: 058
     Dates: start: 20130111, end: 20130731
  2. SOMATULINE DEPOT INJECTION (120MG) [Suspect]
     Dosage: 120 MG
     Route: 058
     Dates: start: 201310
  3. TOPAMAX [Concomitant]
     Indication: PRODUCT USED FOR UNKNOWN INDICATION
     Dosage: NOT REPORTED
     Route: 065
  4. IMITREX [Concomitant]
     Indication: PRODUCT USED FOR UNKNOWN INDICATION
     Dosage: NOT REPORTED
     Route: 065

REACTIONS (6)
  - Neoplasm [Unknown]
  - Headache [Not Recovered/Not Resolved]
  - Insulin-like growth factor increased [Recovered/Resolved]
  - Drug ineffective [Unknown]
  - Insomnia [Not Recovered/Not Resolved]
  - Feeling abnormal [Not Recovered/Not Resolved]
